FAERS Safety Report 16106093 (Version 3)
Quarter: 2019Q2

REPORT INFORMATION
  Report Type: Spontaneous
  Country: GB (occurrence: GB)
  Receive Date: 20190322
  Receipt Date: 20190419
  Transmission Date: 20190711
  Serious: Yes (Other)
  Sender: FDA-Public Use
  Company Number: GB-PFIZER INC-2019118957

PATIENT
  Age: 36 Year
  Sex: Female
  Weight: 62 kg

DRUGS (5)
  1. DOCETAXEL. [Suspect]
     Active Substance: DOCETAXEL
     Indication: CHEMOTHERAPY
     Dosage: 130 MG, CYCLIC (130 MG, EVERY 3 WEEKS)
     Route: 042
     Dates: start: 20190221, end: 20190221
  2. KANJINTI [Concomitant]
     Active Substance: TRASTUZUMAB-ANNS
     Dosage: UNK
  3. PERTUZUMAB. [Concomitant]
     Active Substance: PERTUZUMAB
     Dosage: 840 MG, CYCLIC (840 MG, EVERY 3 WEEKS)
     Route: 042
     Dates: start: 20190220
  4. CARBOPLATIN. [Concomitant]
     Active Substance: CARBOPLATIN
     Dosage: 790 MG, CYCLIC (790 MG, EVERY 3 WEEKS)
     Route: 042
     Dates: start: 20190221
  5. SODIUM CHLORIDE. [Concomitant]
     Active Substance: SODIUM CHLORIDE
     Indication: MEDICATION DILUTION
     Dosage: UNK, EVERY 3 WEEKS
     Route: 042
     Dates: start: 20190221, end: 20190221

REACTIONS (4)
  - Dyspnoea [Recovered/Resolved]
  - Chest discomfort [Recovered/Resolved]
  - Malaise [Recovered/Resolved]
  - Flushing [Recovered/Resolved]

NARRATIVE: CASE EVENT DATE: 20190221
